FAERS Safety Report 7813750-1 (Version None)
Quarter: 2011Q4

REPORT INFORMATION
  Report Type: 
  Country: None (occurrence: None)
  Receive Date: 20111011
  Receipt Date: 20111003
  Transmission Date: 20120403
  Serious: Yes (Death, Other)
  Sender: FDA-Public Use
  Company Number: 2011SP013905

PATIENT
  Age: 34 Year
  Sex: Female
  Weight: 99.3377 kg

DRUGS (3)
  1. NUVARING [Suspect]
     Indication: CONTRACEPTION
     Dates: start: 20071101, end: 20080101
  2. NUVARING [Suspect]
     Indication: CONTRACEPTION
     Dates: start: 20080901, end: 20091010
  3. CINNAMON TABLETS [Concomitant]

REACTIONS (25)
  - RESPIRATORY TRACT INFECTION [None]
  - ABORTION INDUCED [None]
  - OROPHARYNGEAL PAIN [None]
  - PHARYNGITIS [None]
  - BRONCHITIS [None]
  - ABDOMINAL PAIN UPPER [None]
  - ABDOMINAL PAIN LOWER [None]
  - TRICHOMONIASIS [None]
  - PELVIC PAIN [None]
  - CIRCULATORY COLLAPSE [None]
  - VISCERAL CONGESTION [None]
  - GOITRE [None]
  - PULMONARY EMBOLISM [None]
  - HYPERTENSION [None]
  - OVULATION PAIN [None]
  - PULSELESS ELECTRICAL ACTIVITY [None]
  - HYPERCOAGULATION [None]
  - PELVIC MASS [None]
  - NASAL CONGESTION [None]
  - CARDIO-RESPIRATORY ARREST [None]
  - DIABETES MELLITUS INADEQUATE CONTROL [None]
  - DERMATITIS [None]
  - UTERINE LEIOMYOMA [None]
  - DEEP VEIN THROMBOSIS [None]
  - PULMONARY CONGESTION [None]
